FAERS Safety Report 17342134 (Version 1)
Quarter: 2020Q1

REPORT INFORMATION
  Report Type: Spontaneous
  Country: US (occurrence: US)
  Receive Date: 20200129
  Receipt Date: 20200129
  Transmission Date: 20200409
  Serious: Yes (Hospitalization, Other)
  Sender: FDA-Public Use
  Company Number: US-SA-2020SA023410

PATIENT
  Age: 39 Year
  Sex: Male

DRUGS (12)
  1. DUPIXENT [Suspect]
     Active Substance: DUPILUMAB
     Indication: ASTHMA
     Dosage: 300 MG, QOW
     Route: 058
     Dates: start: 20191123
  2. TALTZ [Concomitant]
     Active Substance: IXEKIZUMAB
  3. TAMSULOSIN [Concomitant]
     Active Substance: TAMSULOSIN
  4. HYDROCODONE BITARTRATE AND ACETAMINOPHEN [Concomitant]
     Active Substance: ACETAMINOPHEN\HYDROCODONE BITARTRATE
  5. PREDNISONE. [Concomitant]
     Active Substance: PREDNISONE
  6. AZITHROMYCIN ANHYDROUS. [Concomitant]
     Active Substance: AZITHROMYCIN ANHYDROUS
  7. OSELTAMIVIR [Concomitant]
     Active Substance: OSELTAMIVIR
  8. BUDESONIDE. [Concomitant]
     Active Substance: BUDESONIDE
  9. ALBUTEROL HFA [Concomitant]
     Active Substance: ALBUTEROL SULFATE
  10. DOK [Concomitant]
     Active Substance: DOCUSATE SODIUM
  11. APAP/CODEINE [CODEINE;PARACETAMOL] [Concomitant]
  12. AMOXICILLIN/CLAV POT [Concomitant]

REACTIONS (1)
  - Nephrolithiasis [Recovered/Resolved]
